FAERS Safety Report 7235731-1 (Version None)
Quarter: 2011Q1

REPORT INFORMATION
  Report Type: 
  Country: None (occurrence: None)
  Receive Date: 20110120
  Receipt Date: 20110107
  Transmission Date: 20110831
  Serious: Yes (Hospitalization)
  Sender: FDA-Public Use
  Company Number: CA-ACTELION-A-US2011-43552

PATIENT

DRUGS (4)
  1. TRACLEER [Suspect]
     Indication: PULMONARY ARTERIAL HYPERTENSION
     Route: 048
  2. TREPROSTINIL [Suspect]
  3. ASPIRIN [Concomitant]
  4. DIGOXIN [Concomitant]

REACTIONS (3)
  - FLUID RETENTION [None]
  - RENAL FAILURE [None]
  - DELIRIUM [None]
